FAERS Safety Report 9171317 (Version 2)
Quarter: 2013Q2

REPORT INFORMATION
  Report Type: Spontaneous
  Country: CA (occurrence: CA)
  Receive Date: 20130319
  Receipt Date: 20130422
  Transmission Date: 20140414
  Serious: Yes (Other)
  Sender: FDA-Public Use
  Company Number: CA-PFIZER INC-2013086166

PATIENT
  Age: 23 Year
  Sex: Female

DRUGS (1)
  1. ALESSE-28 [Suspect]

REACTIONS (3)
  - Hepatic enzyme increased [Unknown]
  - Jaundice [Not Recovered/Not Resolved]
  - Pruritus [Not Recovered/Not Resolved]
